FAERS Safety Report 8309126-3 (Version None)
Quarter: 2012Q2

REPORT INFORMATION
  Report Type: 
  Country: None (occurrence: None)
  Receive Date: 20120424
  Receipt Date: 20120420
  Transmission Date: 20120825
  Serious: Yes (Hospitalization, Disabling)
  Sender: FDA-Public Use
  Company Number: GXKR2012DE001529

PATIENT

DRUGS (3)
  1. SIMVASTATIN [Suspect]
     Indication: CORONARY ARTERY DISEASE
     Dosage: DAILY DOSE: 20 MG MILLGRAM(S) EVERY DAYS
     Route: 048
     Dates: start: 20000101, end: 20110922
  2. METOPROLOL TARTRATE [Concomitant]
     Indication: CORONARY ARTERY DISEASE
     Dosage: 100 MG, QD (0.5 DF-0-0)
     Route: 048
     Dates: start: 20000101
  3. PENTAERYTHRITOL TETRANITRATE [Concomitant]
     Indication: CORONARY ARTERY DISEASE
     Dosage: 50 MG, BID (1-0-1)
     Route: 048
     Dates: start: 20070101

REACTIONS (4)
  - AUTOIMMUNE HEPATITIS [None]
  - HEPATIC CIRRHOSIS [None]
  - TRANSAMINASES INCREASED [None]
  - CHOLANGITIS SCLEROSING [None]
